FAERS Safety Report 14377428 (Version 2)
Quarter: 2018Q1

REPORT INFORMATION
  Report Type: Report from Study
  Country: BR (occurrence: BR)
  Receive Date: 20180111
  Receipt Date: 20180116
  Transmission Date: 20180509
  Serious: Yes (Hospitalization, Other)
  Sender: FDA-Public Use
  Company Number: BR-B.I. PHARMACEUTICALS,INC./RIDGEFIELD-2017-BI-063924

PATIENT
  Age: 76 Year
  Sex: Female
  Weight: 85 kg

DRUGS (5)
  1. MIRTAZAPINA [Concomitant]
     Active Substance: MIRTAZAPINE
     Indication: DEPRESSION
     Route: 048
     Dates: start: 201706
  2. DIPIRONA [Concomitant]
     Active Substance: METAMIZOLE
     Indication: BONE PAIN
     Route: 048
     Dates: start: 201706
  3. GILOTRIF [Suspect]
     Active Substance: AFATINIB
     Indication: NON-SMALL CELL LUNG CANCER
     Route: 048
     Dates: start: 20171115, end: 20171203
  4. ENALAPRIL [Concomitant]
     Active Substance: ENALAPRIL
     Indication: HYPERTENSION
     Route: 048
  5. DIPIRONA [Concomitant]
     Active Substance: METAMIZOLE
     Indication: OSTEOARTHRITIS

REACTIONS (8)
  - Vomiting [Recovered/Resolved]
  - Delirium [Recovered/Resolved]
  - Urinary tract infection [Recovered/Resolved]
  - Confusional state [Recovered/Resolved]
  - Diarrhoea [Recovered/Resolved]
  - Dehydration [Recovered/Resolved]
  - Diarrhoea [Recovered/Resolved]
  - Diarrhoea [Recovered/Resolved]

NARRATIVE: CASE EVENT DATE: 20171118
